FAERS Safety Report 18730780 (Version 2)
Quarter: 2022Q2

REPORT INFORMATION
  Report Type: Spontaneous
  Country: US (occurrence: US)
  Receive Date: 20210112
  Receipt Date: 20220503
  Transmission Date: 20220721
  Serious: No
  Sender: FDA-Public Use
  Company Number: US-PFIZER INC-2021012983

PATIENT
  Age: 65 Year
  Sex: Female
  Weight: 65.769 kg

DRUGS (2)
  1. PREGABALIN [Suspect]
     Active Substance: PREGABALIN
     Indication: Fibromyalgia
     Dosage: 3 DF (I HAVE TO TAKE 3 AND DOES NOT TAKE AWAY THE SYMPTOMS)
  2. PREGABALIN [Suspect]
     Active Substance: PREGABALIN
     Indication: Neuralgia
     Dosage: 75 MG, 3X/DAY:75MG 1 CAPSULE IN THE MORNING, AND 2 AT NIGHT

REACTIONS (4)
  - Drug ineffective [Unknown]
  - Overweight [Unknown]
  - Feeling abnormal [Unknown]
  - Weight increased [Unknown]
